FAERS Safety Report 15268398 (Version 1)
Quarter: 2018Q3

REPORT INFORMATION
  Report Type: Spontaneous
  Country: US (occurrence: US)
  Receive Date: 20180725
  Receipt Date: 20180725
  Transmission Date: 20181010
  Serious: Yes (Hospitalization)
  Sender: FDA-Public Use
  Company Number: None

PATIENT
  Age: 76 Year
  Sex: Female

DRUGS (12)
  1. CAPECITABINE. [Suspect]
     Active Substance: CAPECITABINE
     Indication: BREAST CANCER
     Dosage: ?          OTHER FREQUENCY:BID DAYS 1?21;?
     Route: 048
     Dates: start: 20180221
  2. METOPROL SUC [Concomitant]
  3. XARELTO [Concomitant]
     Active Substance: RIVAROXABAN
  4. CAPECITABINE. [Suspect]
     Active Substance: CAPECITABINE
     Indication: BREAST CANCER
     Dosage: ?          OTHER FREQUENCY:BID DAYS 1?21;?
     Route: 048
     Dates: start: 20180221
  5. POTASSIUM CHLOIRDE [Concomitant]
  6. SIMVASTATIN. [Concomitant]
     Active Substance: SIMVASTATIN
  7. PROCHLORPAR [Concomitant]
  8. CILOSTAZOL. [Concomitant]
     Active Substance: CILOSTAZOL
  9. ANASTROZOLE. [Concomitant]
     Active Substance: ANASTROZOLE
  10. TRIAMT/HCTZ [Concomitant]
     Active Substance: HYDROCHLOROTHIAZIDE\TRIAMTERENE
  11. GLIMEPIRIDE. [Concomitant]
     Active Substance: GLIMEPIRIDE
  12. LEVOTHYROXINE. [Concomitant]
     Active Substance: LEVOTHYROXINE

REACTIONS (3)
  - Kidney infection [None]
  - Nail infection [None]
  - Drug dose omission [None]

NARRATIVE: CASE EVENT DATE: 201807
